FAERS Safety Report 11135045 (Version 2)
Quarter: 2015Q2

REPORT INFORMATION
  Report Type: Spontaneous
  Country: US (occurrence: US)
  Receive Date: 20150525
  Receipt Date: 20150527
  Transmission Date: 20150821
  Serious: Yes (Hospitalization, Other)
  Sender: FDA-Public Use
  Company Number: US-JNJFOC-20150508161

PATIENT
  Age: 22 Year
  Sex: Male
  Weight: 76.2 kg

DRUGS (2)
  1. INVEGA SUSTENNA [Suspect]
     Active Substance: PALIPERIDONE PALMITATE
     Indication: PRODUCT USED FOR UNKNOWN INDICATION
     Route: 030
     Dates: start: 20150501, end: 20150501
  2. INVEGA SUSTENNA [Suspect]
     Active Substance: PALIPERIDONE PALMITATE
     Indication: PRODUCT USED FOR UNKNOWN INDICATION
     Route: 030
     Dates: start: 20150508

REACTIONS (18)
  - Suicidal ideation [Unknown]
  - Constipation [Unknown]
  - Hypersomnia [Recovered/Resolved]
  - Palpitations [Unknown]
  - Speech disorder [Not Recovered/Not Resolved]
  - Emotional poverty [Not Recovered/Not Resolved]
  - Polyuria [Unknown]
  - Akathisia [Unknown]
  - Body temperature fluctuation [Unknown]
  - Hypersensitivity [Not Recovered/Not Resolved]
  - Epistaxis [Unknown]
  - Muscular weakness [Unknown]
  - Rash pustular [Not Recovered/Not Resolved]
  - Hospitalisation [Unknown]
  - Tremor [Not Recovered/Not Resolved]
  - Abnormal behaviour [Not Recovered/Not Resolved]
  - Irritability [Unknown]
  - Abnormal behaviour [Not Recovered/Not Resolved]

NARRATIVE: CASE EVENT DATE: 201505
